FAERS Safety Report 6339403-7 (Version None)
Quarter: 2009Q3

REPORT INFORMATION
  Report Type: 
  Country: None (occurrence: None)
  Receive Date: 20090903
  Receipt Date: 20090831
  Transmission Date: 20100115
  Serious: No
  Sender: FDA-Public Use
  Company Number: US-JNJFOC-20090900550

PATIENT
  Sex: Female
  Weight: 63.5 kg

DRUGS (6)
  1. FENTANYL TRANSDERMAL SYSTEM [Suspect]
     Indication: FIBROMYALGIA
     Route: 062
  2. VICODIN [Concomitant]
     Indication: BREAKTHROUGH PAIN
     Route: 048
  3. CYMBALTA [Concomitant]
     Indication: PANIC ATTACK
     Route: 048
  4. WELLBUTRIN [Concomitant]
     Indication: PANIC ATTACK
     Route: 048
  5. AMITRIPTYLINE [Concomitant]
     Indication: PAIN
     Route: 048
  6. CLONAZEPAM [Concomitant]
     Indication: PANIC ATTACK
     Route: 048

REACTIONS (5)
  - DEVICE ADHESION ISSUE [None]
  - DRUG ADMINISTERED AT INAPPROPRIATE SITE [None]
  - DRUG DOSE OMISSION [None]
  - ROTATOR CUFF SYNDROME [None]
  - WRONG TECHNIQUE IN DRUG USAGE PROCESS [None]
